FAERS Safety Report 7121226-2 (Version None)
Quarter: 2010Q4

REPORT INFORMATION
  Report Type: 
  Country: None (occurrence: None)
  Receive Date: 20101122
  Receipt Date: 20101122
  Transmission Date: 20110411
  Serious: Yes (Other)
  Sender: FDA-Public Use
  Company Number: None

PATIENT
  Age: 61 Year
  Sex: Female
  Weight: 106.5953 kg

DRUGS (1)
  1. ZICAM EXTREME CONGESTION RELIEF ZICAM LLC - MATRIX INITATIVES INC- [Suspect]
     Indication: NASAL CONGESTION
     Dosage: 2-3 SPRAYS Q 12 HOURS NASAL
     Route: 045
     Dates: start: 20100920, end: 20100923

REACTIONS (4)
  - AGEUSIA [None]
  - ANOSMIA [None]
  - DRUG INEFFECTIVE [None]
  - DYSGEUSIA [None]
